FAERS Safety Report 7634001-7 (Version None)
Quarter: 2011Q3

REPORT INFORMATION
  Report Type: 
  Country: None (occurrence: None)
  Receive Date: 20110725
  Receipt Date: 20110714
  Transmission Date: 20111222
  Serious: Yes (Hospitalization)
  Sender: FDA-Public Use
  Company Number: JP-GILEAD-2011-0041806

PATIENT
  Age: 30 Year
  Sex: Male

DRUGS (7)
  1. NORVIR [Concomitant]
     Indication: HIV INFECTION
  2. TENOFOVIR DISOPROXIL FUMARATE [Suspect]
     Indication: HIV INFECTION
     Route: 048
  3. REYATAZ [Suspect]
     Indication: HIV INFECTION
  4. SULFAMETHOXAZOLE AND TRIMETHOPRIM [Concomitant]
     Indication: PNEUMOCYSTIS JIROVECI PNEUMONIA
  5. EMTRIVA [Suspect]
     Indication: HIV INFECTION
     Route: 048
  6. FOSCAVIR [Concomitant]
     Indication: CYTOMEGALOVIRUS INFECTION
  7. GANCICLOVIR [Concomitant]
     Indication: CYTOMEGALOVIRUS INFECTION

REACTIONS (2)
  - CYTOMEGALOVIRUS INFECTION [None]
  - DRUG INTERACTION [None]
